FAERS Safety Report 24076283 (Version 1)
Quarter: 2024Q3

REPORT INFORMATION
  Report Type: Spontaneous
  Country: US (occurrence: US)
  Receive Date: 20240711
  Receipt Date: 20240711
  Transmission Date: 20241016
  Serious: Yes (Hospitalization, Other)
  Sender: ABBVIE
  Company Number: US-ABBVIE-5826394

PATIENT
  Sex: Female

DRUGS (26)
  1. LEXAPRO [Suspect]
     Active Substance: ESCITALOPRAM OXALATE
     Indication: Product used for unknown indication
     Route: 048
  2. MIRALAX [Concomitant]
     Active Substance: POLYETHYLENE GLYCOL 3350
     Indication: Product used for unknown indication
     Dosage: ORAL POWDER FOR RECONSTITUTION?DISSOLVE IN WATER BEFORE TAKING, 255 GM, 0 REFILL(S)
     Route: 048
  3. MIRALAX [Concomitant]
     Active Substance: POLYETHYLENE GLYCOL 3350
     Indication: Product used for unknown indication
     Dosage: TIME INTERVAL: AS NECESSARY
  4. REMERON [Concomitant]
     Active Substance: MIRTAZAPINE
     Indication: Product used for unknown indication
     Dosage: HS (AT BEDTIME)
     Route: 048
  5. REMERON [Concomitant]
     Active Substance: MIRTAZAPINE
     Indication: Product used for unknown indication
     Dosage: HS (AT BEDTIME)
     Route: 048
  6. SERTRALINE [Suspect]
     Active Substance: SERTRALINE HYDROCHLORIDE
     Indication: Product used for unknown indication
     Route: 048
  7. PFIZER-BIONTECH COVID-19 VACCINE [Concomitant]
     Active Substance: TOZINAMERAN
     Indication: Product used for unknown indication
     Route: 030
     Dates: start: 20211004, end: 20211004
  8. PFIZER-BIONTECH COVID-19 VACCINE [Concomitant]
     Active Substance: TOZINAMERAN
     Indication: Product used for unknown indication
     Route: 030
     Dates: start: 20210312, end: 20210312
  9. PFIZER-BIONTECH COVID-19 VACCINE [Concomitant]
     Active Substance: TOZINAMERAN
     Indication: Product used for unknown indication
     Route: 030
     Dates: start: 20210217, end: 20210217
  10. XANAX [Concomitant]
     Active Substance: ALPRAZOLAM
     Indication: Anxiety
     Dosage: TIME INTERVAL: 0.33333333 DAYS: PRN
     Route: 048
  11. INFLUENZA VIRUS VACCINE [Concomitant]
     Active Substance: INFLUENZA VIRUS VACCINE
     Indication: Product used for unknown indication
     Route: 030
     Dates: start: 20200930, end: 20200930
  12. INFLUENZA VIRUS VACCINE [Concomitant]
     Active Substance: INFLUENZA VIRUS VACCINE
     Indication: Product used for unknown indication
     Dates: start: 20211004, end: 20211004
  13. INFLUENZA VIRUS VACCINE [Concomitant]
     Active Substance: INFLUENZA VIRUS VACCINE
     Indication: Product used for unknown indication
     Dates: start: 20221019, end: 20221019
  14. INFLUENZA VIRUS VACCINE [Concomitant]
     Active Substance: INFLUENZA VIRUS VACCINE
     Indication: Product used for unknown indication
     Dates: start: 20191016, end: 20191016
  15. INFLUENZA VIRUS VACCINE [Concomitant]
     Active Substance: INFLUENZA VIRUS VACCINE
     Indication: Product used for unknown indication
     Dates: start: 20181011, end: 20181011
  16. INFLUENZA VIRUS VACCINE [Concomitant]
     Active Substance: INFLUENZA VIRUS VACCINE
     Indication: Product used for unknown indication
     Dates: start: 20131026, end: 20131026
  17. INFLUENZA VIRUS VACCINE [Concomitant]
     Active Substance: INFLUENZA VIRUS VACCINE
     Indication: Product used for unknown indication
     Dates: start: 20091216, end: 20091216
  18. TUMS [Concomitant]
     Active Substance: CALCIUM CARBONATE
     Indication: Product used for unknown indication
     Dosage: 500 MG
  19. PREMARIN [Concomitant]
     Active Substance: ESTROGENS, CONJUGATED
     Indication: Atrophic vulvovaginitis
     Dosage: APPLY A .5G (PEA SIZE) AMOUNT OF CREAM VAGINALLY EVERY NIGHT FOR TWO WEEKS, THEN 2X WEEKLY AFTER
     Route: 067
  20. MOTRIN [Concomitant]
     Active Substance: IBUPROFEN
     Indication: Uterovaginal prolapse
     Dosage: 1 TABLET (600 MG TOTAL) BY MOUTH EVERY 6 HOURS FOR 4 DAYS, THEN TAKE 1 TABLET EVERY 6 HOURS ONLY ...
     Route: 048
  21. ULTRAM [Concomitant]
     Active Substance: TRAMADOL HYDROCHLORIDE
     Indication: Uterovaginal prolapse
     Dosage: 1 TABLET (50 MG TOTAL) BY MOUTH EVERY 6 HOURS AS NEEDED
     Route: 048
  22. LORATADINE [Concomitant]
     Active Substance: LORATADINE
     Indication: Product used for unknown indication
     Route: 048
  23. HYOSCYAMINE [Concomitant]
     Active Substance: HYOSCYAMINE
     Indication: Product used for unknown indication
     Dosage: PRN
     Route: 048
  24. PNEUMOCOCCAL 13-VALENT CONJUGATE VACCINE [Concomitant]
     Active Substance: PNEUMOCOCCAL 13-VALENT CONJUGATE VACCINE
     Indication: Product used for unknown indication
     Dates: start: 20170301, end: 20170301
  25. PNEUMOCOCCAL 13-VALENT CONJUGATE VACCINE [Concomitant]
     Active Substance: PNEUMOCOCCAL 13-VALENT CONJUGATE VACCINE
     Indication: Product used for unknown indication
     Dates: start: 20150904, end: 20150904
  26. AMANTADINE [Suspect]
     Active Substance: AMANTADINE
     Indication: Product used for unknown indication
     Route: 048

REACTIONS (46)
  - Breast cancer [Unknown]
  - Nausea [Unknown]
  - Abdominal pain [Unknown]
  - Constipation [Recovering/Resolving]
  - Uterine prolapse [Unknown]
  - Pelvic pain [Unknown]
  - Vaginal haemorrhage [Unknown]
  - Cystocele [Unknown]
  - Postmenopausal haemorrhage [Unknown]
  - Vulvovaginal discomfort [Unknown]
  - Vaginal prolapse [Unknown]
  - Dysuria [Recovered/Resolved]
  - Uterovaginal prolapse [Unknown]
  - Vulvovaginal swelling [Unknown]
  - Hysterectomy [Unknown]
  - Colporrhaphy [Unknown]
  - Cystoscopy [Unknown]
  - Pelvic organ prolapse [Unknown]
  - Rhinitis allergic [Unknown]
  - Urinary incontinence [Unknown]
  - Muscular weakness [Unknown]
  - Gastrointestinal disorder [Unknown]
  - Dysgraphia [Unknown]
  - Speech disorder [Unknown]
  - Paraesthesia [Unknown]
  - Parasomnia [Unknown]
  - Procedural nausea [Unknown]
  - Procedural vomiting [Unknown]
  - Urinary tract disorder [Recovered/Resolved]
  - Ataxia [Unknown]
  - Balance disorder [Unknown]
  - Fine motor skill dysfunction [Unknown]
  - Fatigue [Unknown]
  - Autonomic nervous system imbalance [Unknown]
  - Balance disorder [Unknown]
  - Anxiety [Unknown]
  - Depression [Unknown]
  - Discomfort [Unknown]
  - Fall [Unknown]
  - Dizziness [Unknown]
  - Sinus congestion [Unknown]
  - Asthenia [Recovered/Resolved]
  - Large intestine polyp [Unknown]
  - Rectal polyp [Unknown]
  - Haemorrhoids [Unknown]
  - Diverticulum [Unknown]

NARRATIVE: CASE EVENT DATE: 20210101
